FAERS Safety Report 6522883-1 (Version None)
Quarter: 2009Q4

REPORT INFORMATION
  Report Type: 
  Country: None (occurrence: None)
  Receive Date: 20091230
  Receipt Date: 20091222
  Transmission Date: 20100525
  Serious: Yes (Other)
  Sender: FDA-Public Use
  Company Number: US-JNJFOC-20090907559

PATIENT
  Sex: Female
  Weight: 4.99 kg

DRUGS (4)
  1. TYLENOL (CAPLET) [Suspect]
     Indication: IMMUNISATION
     Route: 048
  2. TYLENOL (CAPLET) [Suspect]
     Route: 048
  3. TYLENOL (CAPLET) [Suspect]
     Indication: PYREXIA
     Route: 048
  4. TYLENOL (CAPLET) [Suspect]
     Route: 048

REACTIONS (2)
  - TRANSMISSION OF AN INFECTIOUS AGENT VIA A MEDICINAL PRODUCT [None]
  - VOMITING PROJECTILE [None]
